FAERS Safety Report 18733208 (Version 2)
Quarter: 2021Q1

REPORT INFORMATION
  Report Type: Report from Study
  Country: US (occurrence: US)
  Receive Date: 20210113
  Receipt Date: 20210122
  Transmission Date: 20210419
  Serious: Yes (Other)
  Sender: FDA-Public Use
  Company Number: US-CLOVIS ONCOLOGY-CLO-2021-000050

PATIENT
  Sex: Female

DRUGS (1)
  1. RUBRACA [Suspect]
     Active Substance: RUCAPARIB CAMSYLATE
     Indication: OVARIAN CANCER
     Dosage: 600 MILLIGRAM, BID

REACTIONS (4)
  - Renal impairment [Unknown]
  - Stomatitis [Unknown]
  - Hepatic function abnormal [Recovered/Resolved]
  - Decreased appetite [Unknown]
